FAERS Safety Report 12356657 (Version 29)
Quarter: 2024Q1

REPORT INFORMATION
  Report Type: Spontaneous
  Country: CA (occurrence: CA)
  Receive Date: 20160511
  Receipt Date: 20240227
  Transmission Date: 20240409
  Serious: Yes (Other)
  Sender: FDA-Public Use
  Company Number: CA-AMGEN-CANSP2016056038

PATIENT
  Age: 55 Year
  Sex: Female

DRUGS (88)
  1. CELEBREX [Interacting]
     Active Substance: CELECOXIB
     Indication: Rheumatoid arthritis
     Dosage: UNK
     Route: 065
  2. CELEBREX [Interacting]
     Active Substance: CELECOXIB
     Indication: Arthritis
     Dosage: UNK
     Route: 065
  3. CELECOXIB [Suspect]
     Active Substance: CELECOXIB
     Indication: Rheumatoid arthritis
     Dosage: UNK
     Route: 065
  4. CELECOXIB [Suspect]
     Active Substance: CELECOXIB
     Indication: Arthritis
  5. LYRICA [Interacting]
     Active Substance: PREGABALIN
     Indication: Rheumatoid arthritis
     Dosage: UNK
     Route: 065
  6. PREGABALIN [Suspect]
     Active Substance: PREGABALIN
     Indication: Product used for unknown indication
     Dosage: UNK
     Route: 065
  7. CELECOXIB [Suspect]
     Active Substance: CELECOXIB
     Indication: Rheumatoid arthritis
     Dosage: UNK
     Route: 065
  8. CELECOXIB [Suspect]
     Active Substance: CELECOXIB
     Indication: Arthritis
  9. PREGABALIN [Suspect]
     Active Substance: PREGABALIN
     Indication: Product used for unknown indication
     Dosage: UNK
     Route: 065
  10. ENBREL [Interacting]
     Active Substance: ETANERCEPT
     Indication: Rheumatoid arthritis
     Dosage: 50 MG, WEEKLY
     Route: 058
     Dates: start: 2010, end: 201507
  11. ENBREL [Interacting]
     Active Substance: ETANERCEPT
     Dosage: UNK
     Route: 065
     Dates: end: 201507
  12. ETANERCEPT [Suspect]
     Active Substance: ETANERCEPT
     Indication: Rheumatoid arthritis
     Dosage: UNK
     Route: 065
  13. XELJANZ [Suspect]
     Active Substance: TOFACITINIB CITRATE
     Indication: Rheumatoid arthritis
     Dosage: 1 DOSAGE FORM, BID , 2X/DAY
     Route: 048
     Dates: start: 20150724
  14. XELJANZ [Suspect]
     Active Substance: TOFACITINIB CITRATE
     Dosage: 5 MG, BID, 2X/DAY REGIMEN DOSE UNIT: MILLIGRAM
     Route: 065
     Dates: start: 20150724, end: 201511
  15. XELJANZ [Suspect]
     Active Substance: TOFACITINIB CITRATE
     Dosage: UNK
     Route: 065
  16. XELJANZ [Suspect]
     Active Substance: TOFACITINIB CITRATE
     Dosage: 5 MG, BID 2X/DAY REGIMEN DOSE UNIT: MILLIGRAM
     Route: 065
  17. SULFASALAZINE [Suspect]
     Active Substance: SULFASALAZINE
     Indication: Product used for unknown indication
     Dosage: UNK
     Route: 065
  18. ARTHROTEC [Interacting]
     Active Substance: DICLOFENAC SODIUM\MISOPROSTOL
     Indication: Rheumatoid arthritis
     Dosage: UNK
     Route: 065
     Dates: start: 2004, end: 2010
  19. METHOTREXATE SODIUM [Interacting]
     Active Substance: METHOTREXATE SODIUM
     Indication: Rheumatoid arthritis
     Dosage: UNK
     Route: 065
  20. METHOTREXATE SODIUM [Interacting]
     Active Substance: METHOTREXATE SODIUM
     Dosage: UNK
     Route: 048
  21. METHOTREXATE SODIUM [Interacting]
     Active Substance: METHOTREXATE SODIUM
     Dosage: UNK
     Route: 065
     Dates: start: 2004, end: 2015
  22. METHOTREXATE SODIUM [Suspect]
     Active Substance: METHOTREXATE SODIUM
     Indication: Rheumatoid arthritis
     Dosage: UNK
     Route: 065
  23. METHOTREXATE SODIUM [Suspect]
     Active Substance: METHOTREXATE SODIUM
     Dosage: UNK
     Route: 065
  24. METHOTREXATE SODIUM [Suspect]
     Active Substance: METHOTREXATE SODIUM
     Dosage: UNK
     Route: 058
  25. METHOTREXATE SODIUM [Suspect]
     Active Substance: METHOTREXATE SODIUM
     Dosage: UNK
     Route: 042
  26. RITUXIMAB [Suspect]
     Active Substance: RITUXIMAB
     Indication: Product used for unknown indication
     Dosage: 2000 MG
     Route: 042
  27. RITUXIMAB [Suspect]
     Active Substance: RITUXIMAB
     Dosage: UNK
     Route: 042
  28. NAPROSYN [Suspect]
     Active Substance: NAPROXEN
     Indication: Rheumatoid arthritis
     Dosage: UNK
     Route: 065
  29. NAPROSYN [Suspect]
     Active Substance: NAPROXEN
     Dosage: UNK
     Route: 065
  30. PLAQUENIL [Interacting]
     Active Substance: HYDROXYCHLOROQUINE SULFATE
     Indication: Rheumatoid arthritis
     Dosage: UNK
     Route: 065
  31. PLAQUENIL [Interacting]
     Active Substance: HYDROXYCHLOROQUINE SULFATE
     Dosage: UNK
     Route: 065
     Dates: start: 2004
  32. PREDNISONE [Interacting]
     Active Substance: PREDNISONE
     Indication: Rheumatoid arthritis
     Dosage: UNK
     Route: 065
  33. VOLTAREN [Interacting]
     Active Substance: DICLOFENAC SODIUM
     Indication: Rheumatoid arthritis
     Dosage: UNK
     Route: 065
     Dates: start: 2004
  34. AMITRIPTYLINE [Interacting]
     Active Substance: AMITRIPTYLINE
     Indication: Rheumatoid arthritis
     Dosage: UNK
     Route: 065
  35. AMITRIPTYLINE [Interacting]
     Active Substance: AMITRIPTYLINE
     Indication: Rheumatoid arthritis
     Dosage: UNK
     Route: 065
  36. AMITRIPTYLINE [Interacting]
     Active Substance: AMITRIPTYLINE
     Indication: Rheumatoid arthritis
     Dosage: UNK
     Route: 065
  37. PREDNISONE [Interacting]
     Active Substance: PREDNISONE
     Indication: Rheumatoid arthritis
     Dosage: 5 MG, UNK
     Route: 065
  38. PREDNISONE [Interacting]
     Active Substance: PREDNISONE
     Dosage: UNK
     Route: 065
  39. DICLOFENAC SODIUM [Interacting]
     Active Substance: DICLOFENAC\DICLOFENAC SODIUM
     Indication: Rheumatoid arthritis
     Dosage: UNK
     Route: 065
  40. DICLOFENAC SODIUM [Interacting]
     Active Substance: DICLOFENAC\DICLOFENAC SODIUM
     Indication: Rheumatoid arthritis
     Dosage: UNK
     Route: 065
  41. HYDROXYCHLOROQUINE [Interacting]
     Active Substance: HYDROXYCHLOROQUINE
     Indication: Product used for unknown indication
     Dosage: UNK
     Route: 065
  42. HYDROXYCHLOROQUINE SULFATE [Interacting]
     Active Substance: HYDROXYCHLOROQUINE SULFATE
     Indication: Product used for unknown indication
     Dosage: UNK
     Route: 065
  43. DICLOFENAC [Interacting]
     Active Substance: DICLOFENAC
     Indication: Rheumatoid arthritis
     Dosage: UNK
     Route: 065
  44. NIFEDIPINE [Interacting]
     Active Substance: NIFEDIPINE
     Indication: Rheumatoid arthritis
     Dosage: UNK
     Route: 065
  45. PERPHENAZINE AND AMITRIPTYLINE HYDROCHLORIDE [Interacting]
     Active Substance: AMITRIPTYLINE HYDROCHLORIDE\PERPHENAZINE
     Indication: Rheumatoid arthritis
     Dosage: UNK
     Route: 065
  46. PERPHENAZINE AND AMITRIPTYLINE HYDROCHLORIDE [Interacting]
     Active Substance: AMITRIPTYLINE HYDROCHLORIDE\PERPHENAZINE
     Dosage: UNK
     Route: 065
  47. HYDROXYCHLOROQUINE SULFATE [Interacting]
     Active Substance: HYDROXYCHLOROQUINE SULFATE
     Indication: Rheumatoid arthritis
     Dosage: UNK
     Route: 065
  48. NAPROXEN [Interacting]
     Active Substance: NAPROXEN
     Indication: Rheumatoid arthritis
     Dosage: UNK
     Route: 065
  49. AMITRIPTYLINE [Interacting]
     Active Substance: AMITRIPTYLINE
     Indication: Rheumatoid arthritis
     Dosage: UNK
     Route: 065
  50. DICLOFENAC [Interacting]
     Active Substance: DICLOFENAC
     Indication: Rheumatoid arthritis
     Dosage: UNK
     Route: 065
  51. DICLOFENAC POTASSIUM [Interacting]
     Active Substance: DICLOFENAC POTASSIUM
     Indication: Rheumatoid arthritis
     Dosage: UNK
     Route: 065
  52. MISOPROSTOL [Interacting]
     Active Substance: MISOPROSTOL
     Indication: Rheumatoid arthritis
     Dosage: UNK
     Route: 065
  53. ELAVIL [Interacting]
     Active Substance: AMITRIPTYLINE HYDROCHLORIDE
     Indication: Rheumatoid arthritis
     Dosage: UNK
     Route: 065
  54. ELAVIL [Interacting]
     Active Substance: AMITRIPTYLINE HYDROCHLORIDE
     Dosage: UNK
     Route: 065
  55. ABATACEPT [Interacting]
     Active Substance: ABATACEPT
     Indication: Product used for unknown indication
     Dosage: UNK
     Route: 065
  56. AZATHIOPRINE [Interacting]
     Active Substance: AZATHIOPRINE
     Indication: Product used for unknown indication
     Dosage: UNK
     Route: 065
  57. HUMIRA [Interacting]
     Active Substance: ADALIMUMAB
     Indication: Rheumatoid arthritis
     Dosage: 40 MILLIGRAM 1 EVERY 2 WEEKS
     Route: 058
  58. HUMIRA [Interacting]
     Active Substance: ADALIMUMAB
     Dosage: 40 MILLIGRAM
     Route: 058
  59. HUMIRA [Interacting]
     Active Substance: ADALIMUMAB
     Dosage: 40 MILLIGRAM 1 EVERY 2 WEEKS
     Route: 058
  60. LEFLUNOMIDE [Interacting]
     Active Substance: LEFLUNOMIDE
     Indication: Product used for unknown indication
     Dosage: UNK
     Route: 065
  61. RITUXAN [Interacting]
     Active Substance: RITUXIMAB
     Indication: Product used for unknown indication
     Dosage: 2000 MILLIGRAM
     Route: 042
  62. ORENCIA [Interacting]
     Active Substance: ABATACEPT
     Indication: Product used for unknown indication
     Dosage: UNK
     Route: 065
  63. ORENCIA [Interacting]
     Active Substance: ABATACEPT
     Dosage: 750 MILLIGRAM, QWK
     Route: 058
  64. AZATHIOPRINE [Interacting]
     Active Substance: AZATHIOPRINE
     Indication: Product used for unknown indication
     Dosage: UNK
     Route: 065
  65. LEFLUNOMIDE [Interacting]
     Active Substance: LEFLUNOMIDE
     Indication: Product used for unknown indication
     Dosage: UNK
     Route: 065
  66. ACTEMRA [Interacting]
     Active Substance: TOCILIZUMAB
     Indication: Product used for unknown indication
     Dosage: UNK
     Route: 065
  67. ARAVA [Interacting]
     Active Substance: LEFLUNOMIDE
     Indication: Product used for unknown indication
     Dosage: UNK
     Route: 065
  68. NAPROXEN [Interacting]
     Active Substance: NAPROXEN
     Indication: Product used for unknown indication
     Dosage: UNK
     Route: 065
  69. CELECOXIB [Interacting]
     Active Substance: CELECOXIB
     Indication: Product used for unknown indication
     Dosage: UNK
     Route: 065
  70. PREGABALIN [Interacting]
     Active Substance: PREGABALIN
     Indication: Product used for unknown indication
     Dosage: UNK
     Route: 065
  71. AMITRIPTYLINE HYDROCHLORIDE\PERPHENAZINE [Interacting]
     Active Substance: AMITRIPTYLINE HYDROCHLORIDE\PERPHENAZINE
     Indication: Rheumatoid arthritis
     Dosage: UNK
     Route: 065
  72. PREDNISONE [Interacting]
     Active Substance: PREDNISONE
     Indication: Product used for unknown indication
     Dosage: UNK
     Route: 065
  73. TOFACITINIB [Interacting]
     Active Substance: TOFACITINIB
     Indication: Product used for unknown indication
     Dosage: UNK
     Route: 065
  74. ALLOPURINOL [Interacting]
     Active Substance: ALLOPURINOL
     Indication: Rheumatoid arthritis
     Dosage: UNK
     Route: 065
  75. ERELZI [Interacting]
     Active Substance: ETANERCEPT-SZZS
     Indication: Rheumatoid arthritis
     Dosage: UNK
     Route: 065
  76. REMICADE [Interacting]
     Active Substance: INFLIXIMAB
     Indication: Rheumatoid arthritis
     Dosage: UNK
     Route: 042
  77. DICLOFENAC [Interacting]
     Active Substance: DICLOFENAC
     Indication: Rheumatoid arthritis
     Dosage: UNK
     Route: 065
  78. HUMIRA [Interacting]
     Active Substance: ADALIMUMAB
     Indication: Rheumatoid arthritis
     Dosage: 40 MILLIGRAM
     Route: 058
  79. HYDROXYCHLOROQUINE SULFATE [Interacting]
     Active Substance: HYDROXYCHLOROQUINE SULFATE
     Indication: Rheumatoid arthritis
     Dosage: UNK
     Route: 065
  80. HYDROXYCHLOROQUINE SULFATE [Interacting]
     Active Substance: HYDROXYCHLOROQUINE SULFATE
     Indication: Rheumatoid arthritis
     Dosage: UNK
     Route: 058
  81. METHOTREXATE [Interacting]
     Active Substance: METHOTREXATE
     Indication: Rheumatoid arthritis
     Dosage: UNK
     Route: 048
  82. METHOTREXATE [Interacting]
     Active Substance: METHOTREXATE
     Dosage: UNK
     Route: 065
  83. METHOTREXATE [Interacting]
     Active Substance: METHOTREXATE
     Indication: Rheumatoid arthritis
     Dosage: UNK
     Route: 058
  84. METHOTREXATE [Interacting]
     Active Substance: METHOTREXATE
     Dosage: UNK
     Route: 042
  85. METHOTREXATE [Interacting]
     Active Substance: METHOTREXATE
     Dosage: UNK, PARENTERAL
     Route: 065
  86. METHOTREXATE [Interacting]
     Active Substance: METHOTREXATE
     Dosage: UNK
     Route: 065
  87. AMITRIPTYLINE PAMOATE\PERPHENAZINE [Interacting]
     Active Substance: AMITRIPTYLINE PAMOATE\PERPHENAZINE
     Indication: Rheumatoid arthritis
     Dosage: UNK
     Route: 065
  88. XELJANZ [Interacting]
     Active Substance: TOFACITINIB CITRATE
     Indication: Rheumatoid arthritis
     Dosage: 1 DOSAGE FORM, BID
     Route: 048

REACTIONS (27)
  - Asthenia [Not Recovered/Not Resolved]
  - Wrist deformity [Not Recovered/Not Resolved]
  - Drug interaction [Not Recovered/Not Resolved]
  - Impaired work ability [Not Recovered/Not Resolved]
  - Blood cholesterol increased [Not Recovered/Not Resolved]
  - Drug intolerance [Not Recovered/Not Resolved]
  - Synovitis [Not Recovered/Not Resolved]
  - Rheumatoid arthritis [Not Recovered/Not Resolved]
  - Arthralgia [Not Recovered/Not Resolved]
  - Condition aggravated [Not Recovered/Not Resolved]
  - Gastrooesophageal reflux disease [Not Recovered/Not Resolved]
  - Malaise [Not Recovered/Not Resolved]
  - Movement disorder [Not Recovered/Not Resolved]
  - Muscle spasms [Not Recovered/Not Resolved]
  - Pain [Not Recovered/Not Resolved]
  - Pain in jaw [Not Recovered/Not Resolved]
  - Swelling [Not Recovered/Not Resolved]
  - Anaphylactic reaction [Not Recovered/Not Resolved]
  - Rash [Not Recovered/Not Resolved]
  - Mobility decreased [Not Recovered/Not Resolved]
  - Disease recurrence [Not Recovered/Not Resolved]
  - Hepatic enzyme increased [Not Recovered/Not Resolved]
  - Pneumonia [Not Recovered/Not Resolved]
  - Contraindicated product administered [Not Recovered/Not Resolved]
  - Drug ineffective [Not Recovered/Not Resolved]
  - Therapeutic response decreased [Not Recovered/Not Resolved]
  - Off label use [Not Recovered/Not Resolved]
